FAERS Safety Report 23167039 (Version 2)
Quarter: 2023Q4

REPORT INFORMATION
  Report Type: Spontaneous
  Country: SI (occurrence: None)
  Receive Date: 20231109
  Receipt Date: 20231115
  Transmission Date: 20240110
  Serious: Yes (Other)
  Sender: FDA-Public Use
  Company Number: 2023A253188

PATIENT
  Age: 24 Year
  Sex: Male

DRUGS (2)
  1. TICAGRELOR [Suspect]
     Active Substance: TICAGRELOR
     Route: 048
  2. NAPROXEN [Suspect]
     Active Substance: NAPROXEN

REACTIONS (1)
  - Cutaneous vasculitis [Recovered/Resolved]
